FAERS Safety Report 25751245 (Version 3)
Quarter: 2025Q4

REPORT INFORMATION
  Report Type: Spontaneous
  Country: EU (occurrence: EU)
  Receive Date: 20250902
  Receipt Date: 20251107
  Transmission Date: 20260117
  Serious: Yes (Hospitalization, Other)
  Sender: NOVO NORDISK
  Company Number: EU-PFIZER INC-PV202500089982

PATIENT
  Age: 33 Year
  Sex: Male

DRUGS (28)
  1. NORDITROPIN [Suspect]
     Active Substance: SOMATROPIN
     Indication: Blood growth hormone
     Dosage: UNK (PERIODICALLY, 4-5 TIMES A WEEK BEFORE EACH TRAINING SESSION)
  2. CABERGOLINE [Suspect]
     Active Substance: CABERGOLINE
     Indication: Product used for unknown indication
     Dosage: UNK
  3. CABERGOLINE [Suspect]
     Active Substance: CABERGOLINE
     Indication: Exercise tolerance increased
     Dosage: UNK
  4. TRAZODONE HYDROCHLORIDE [Suspect]
     Active Substance: TRAZODONE HYDROCHLORIDE
     Indication: Mixed anxiety and depressive disorder
     Dosage: UNK
  5. TRAZODONE HYDROCHLORIDE [Suspect]
     Active Substance: TRAZODONE HYDROCHLORIDE
     Indication: Exercise tolerance increased
     Dosage: UNK
  6. CITALOPRAM [Suspect]
     Active Substance: CITALOPRAM
     Indication: Mixed anxiety and depressive disorder
     Dosage: UNK
  7. CITALOPRAM [Suspect]
     Active Substance: CITALOPRAM
     Indication: Mixed anxiety and depressive disorder
     Dosage: UNK
  8. CITALOPRAM [Suspect]
     Active Substance: CITALOPRAM
     Indication: Mixed anxiety and depressive disorder
     Dosage: UNK
  9. CITALOPRAM [Suspect]
     Active Substance: CITALOPRAM
     Indication: Exercise tolerance increased
  10. CITALOPRAM [Suspect]
     Active Substance: CITALOPRAM
     Indication: Exercise tolerance increased
     Dosage: UNK
  11. HYDROXYZINE [Suspect]
     Active Substance: HYDROXYZINE HYDROCHLORIDE
     Indication: Exercise tolerance increased
     Dosage: UNK
  12. HYDROXYZINE [Suspect]
     Active Substance: HYDROXYZINE HYDROCHLORIDE
     Indication: Mixed anxiety and depressive disorder
     Dosage: UNK
  13. ALPRAZOLAM [Suspect]
     Active Substance: ALPRAZOLAM
     Dosage: 1 MG, DAILY (/24 H)
  14. ALPRAZOLAM [Suspect]
     Active Substance: ALPRAZOLAM
     Dosage: 0.5 MG, DAILY (/24 H)
  15. ALPRAZOLAM [Suspect]
     Active Substance: ALPRAZOLAM
     Indication: Exercise tolerance increased
     Dosage: 1.5 MILLIGRAM, ONCE A DAY
  16. ALPRAZOLAM [Suspect]
     Active Substance: ALPRAZOLAM
     Indication: Mixed anxiety and depressive disorder
     Dosage: 1 MG, QD
  17. ALPRAZOLAM [Suspect]
     Active Substance: ALPRAZOLAM
     Indication: Exercise tolerance increased
     Dosage: 0.5 MG, QD
  18. DIAZEPAM [Suspect]
     Active Substance: DIAZEPAM
     Indication: Exercise tolerance increased
     Dosage: UNK
  19. DIAZEPAM [Suspect]
     Active Substance: DIAZEPAM
     Indication: Mixed anxiety and depressive disorder
     Dosage: UNK
  20. DIAZEPAM [Suspect]
     Active Substance: DIAZEPAM
     Indication: Exercise tolerance increased
     Dosage: UNK
  21. DIAZEPAM [Suspect]
     Active Substance: DIAZEPAM
     Dosage: UNK
  22. TESTOSTERONE [Suspect]
     Active Substance: TESTOSTERONE
     Indication: Exercise tolerance increased
     Dosage: UNK (THE WEEKLY DOSE OF TESTOSTERONE PERIODICALLY EXCEEDED 1 G)
  23. TESTOSTERONE [Suspect]
     Active Substance: TESTOSTERONE
     Indication: Exercise tolerance increased
     Dosage: UNK THE WEEKLY DOSE OF TESTOSTERONE PERIODICALLY EXCEEDED 1 G )
  24. NANDROLONE [Suspect]
     Active Substance: NANDROLONE
     Indication: Product used for unknown indication
     Dosage: UNK
  25. NANDROLONE [Suspect]
     Active Substance: NANDROLONE
     Indication: Exercise tolerance increased
     Dosage: UNK
  26. ANASTROZOLE [Suspect]
     Active Substance: ANASTROZOLE
     Indication: Exercise tolerance increased
     Dosage: UNK
  27. ANASTROZOLE [Suspect]
     Active Substance: ANASTROZOLE
     Dosage: UNK
  28. SOMATROPIN [Suspect]
     Active Substance: SOMATROPIN
     Indication: Blood growth hormone
     Dosage: UNK (PERIODICALLY, 4-5 TIMES A WEEK BEFORE EACH TRAINING SESSION)

REACTIONS (13)
  - Chest pain [Unknown]
  - Hypertension [Unknown]
  - Hypoglycaemia [Unknown]
  - Andropause [Unknown]
  - Arteriosclerosis coronary artery [Recovering/Resolving]
  - Peptic ulcer [Unknown]
  - Drug abuse [Unknown]
  - High density lipoprotein decreased [Recovering/Resolving]
  - Blood testosterone increased [Unknown]
  - Insulin-like growth factor increased [Unknown]
  - Irritable bowel syndrome [Unknown]
  - Blood growth hormone increased [Unknown]
  - Off label use [Unknown]
